FAERS Safety Report 14023618 (Version 4)
Quarter: 2019Q3

REPORT INFORMATION
  Report Type: Spontaneous
  Country: US (occurrence: US)
  Receive Date: 20170928
  Receipt Date: 20190919
  Transmission Date: 20191004
  Serious: Yes (Other)
  Sender: FDA-Public Use
  Company Number: US-SA-2016SA222294

PATIENT
  Age: 71 Year
  Sex: Female
  Weight: 66.67 kg

DRUGS (2)
  1. AUBAGIO [Suspect]
     Active Substance: TERIFLUNOMIDE
     Indication: MULTIPLE SCLEROSIS
     Dosage: 7 MG,QD
     Route: 048
     Dates: start: 20131007
  2. AUBAGIO [Suspect]
     Active Substance: TERIFLUNOMIDE
     Dosage: 7 MG, QD
     Route: 048
     Dates: start: 20181220

REACTIONS (6)
  - Hypertension [Unknown]
  - Tooth infection [Unknown]
  - Burning sensation [Unknown]
  - Thyroid mass [Unknown]
  - Cough [Unknown]
  - Fatigue [Unknown]
